FAERS Safety Report 16811019 (Version 1)
Quarter: 2019Q3

REPORT INFORMATION
  Report Type: Spontaneous
  Country: PT (occurrence: PT)
  Receive Date: 20190916
  Receipt Date: 20190916
  Transmission Date: 20191005
  Serious: Yes (Hospitalization, Other)
  Sender: FDA-Public Use
  Company Number: PT-MYLANLABS-2019M1086036

PATIENT
  Age: 58 Year
  Sex: Male

DRUGS (4)
  1. OXALIPLATIN. [Suspect]
     Active Substance: OXALIPLATIN
     Indication: ADENOCARCINOMA OF COLON
     Dosage: UNK
     Route: 065
  2. AMOXICILLIN/CLAVULANIC ACID [Suspect]
     Active Substance: AMOXICILLIN\CLAVULANIC ACID
     Indication: ABDOMINAL WALL HAEMATOMA
     Dosage: UNK
     Route: 065
  3. LEUCOVORINE [Concomitant]
     Active Substance: LEUCOVORIN
     Indication: ADENOCARCINOMA OF COLON
     Dosage: UNK
  4. FLUORURACILO [Concomitant]
     Indication: ADENOCARCINOMA OF COLON
     Dosage: UNK

REACTIONS (2)
  - Drug-induced liver injury [Recovered/Resolved]
  - Off label use [Recovered/Resolved]
